FAERS Safety Report 9912264 (Version 1)
Quarter: 2014Q1

REPORT INFORMATION
  Report Type: Spontaneous
  Country: US (occurrence: US)
  Receive Date: 20140220
  Receipt Date: 20140220
  Transmission Date: 20141002
  Serious: Yes (Other)
  Sender: FDA-Public Use
  Company Number: US-AMGEN-USASP2014012088

PATIENT
  Age: 45 Year
  Sex: Female

DRUGS (6)
  1. PEGFILGRASTIM [Suspect]
     Indication: BREAST CANCER
     Dosage: UNK
     Route: 065
  2. FILGRASTIM [Suspect]
     Indication: BREAST CANCER
     Dosage: UNK
     Route: 065
  3. BEVACIZUMAB [Suspect]
     Indication: BREAST CANCER
     Dosage: UNK, OVER 30-90 MINS ON DAY 1 OF 21 DAY CYCLE
     Route: 042
     Dates: start: 20080317
  4. CYCLOPHOSPHAMIDE [Suspect]
     Indication: BREAST CANCER
     Dosage: UNK
     Route: 065
     Dates: end: 20080505
  5. DOXORUBICIN HYDROCHLORIDE [Suspect]
     Indication: BREAST CANCER
     Dosage: UNK
     Route: 065
     Dates: end: 20080505
  6. PACLITAXEL [Suspect]
     Indication: BREAST CANCER
     Dosage: UNK
     Route: 065
     Dates: start: 20080317

REACTIONS (1)
  - Muscular weakness [Recovering/Resolving]
